FAERS Safety Report 5967558-2 (Version None)
Quarter: 2008Q4

REPORT INFORMATION
  Report Type: 
  Country: None (occurrence: None)
  Receive Date: 20081125
  Receipt Date: 20081118
  Transmission Date: 20090506
  Serious: Yes (Death, Hospitalization, Other)
  Sender: FDA-Public Use
  Company Number: MY-PFIZER INC-2008097540

PATIENT
  Age: 75 Year
  Sex: Female

DRUGS (5)
  1. LYRICA [Suspect]
     Indication: PAIN
     Route: 048
     Dates: start: 20081020
  2. PLAVIX [Concomitant]
  3. WARFARIN SODIUM [Concomitant]
  4. DIAMICRON [Concomitant]
  5. LASIX [Concomitant]

REACTIONS (3)
  - BLOOD SODIUM DECREASED [None]
  - COMA [None]
  - DEATH [None]
